FAERS Safety Report 10744568 (Version 4)
Quarter: 2020Q2

REPORT INFORMATION
  Report Type: Spontaneous
  Country: US (occurrence: US)
  Receive Date: 20150128
  Receipt Date: 20200630
  Transmission Date: 20200713
  Serious: Yes (Other)
  Sender: FDA-Public Use
  Company Number: US-SA-2015SA008511

PATIENT

DRUGS (13)
  1. STERILE WATER [Concomitant]
     Active Substance: WATER
     Route: 065
  2. CARBAMAZEPINE. [Concomitant]
     Active Substance: CARBAMAZEPINE
  3. LIDOCAINE. [Concomitant]
     Active Substance: LIDOCAINE
     Route: 065
  4. EPINEPHRINE. [Concomitant]
     Active Substance: EPINEPHRINE
     Route: 065
  5. HYDROCORTISONE. [Concomitant]
     Active Substance: HYDROCORTISONE
  6. FABRAZYME [Suspect]
     Active Substance: AGALSIDASE BETA
     Indication: LIPIDOSIS
     Dosage: 70 MG, QOW
     Route: 041
     Dates: start: 20130211
  7. FABRAZYME [Suspect]
     Active Substance: AGALSIDASE BETA
     Indication: GLYCOGEN STORAGE DISEASE TYPE IV
     Dosage: 70 MG, QOW
     Route: 041
     Dates: start: 20130207
  8. LORATADINE. [Concomitant]
     Active Substance: LORATADINE
     Route: 065
  9. ALBUTEROL [SALBUTAMOL] [Concomitant]
     Active Substance: ALBUTEROL
     Route: 065
  10. NORMAL SALINE [Concomitant]
     Active Substance: SODIUM CHLORIDE
     Route: 065
  11. ACETAMINOPHEN. [Concomitant]
     Active Substance: ACETAMINOPHEN
     Route: 065
  12. AMOXICILLIN. [Concomitant]
     Active Substance: AMOXICILLIN
     Route: 065
  13. DIPHENHYDRAMINE. [Concomitant]
     Active Substance: DIPHENHYDRAMINE
     Route: 065

REACTIONS (5)
  - Arthritis infective [Unknown]
  - Staphylococcal infection [Unknown]
  - Furuncle [Unknown]
  - Fabry^s disease [Unknown]
  - Chills [Unknown]
